FAERS Safety Report 6269254-3 (Version None)
Quarter: 2009Q3

REPORT INFORMATION
  Report Type: 
  Country: None (occurrence: None)
  Receive Date: 20090715
  Receipt Date: 20090710
  Transmission Date: 20100115
  Serious: Yes (Hospitalization)
  Sender: FDA-Public Use
  Company Number: JP-BRISTOL-MYERS SQUIBB COMPANY-14700892

PATIENT
  Age: 41 Year
  Sex: Male

DRUGS (7)
  1. REYATAZ [Suspect]
     Indication: HIV INFECTION
     Route: 048
     Dates: start: 20080225
  2. NORVIR [Suspect]
     Indication: HIV INFECTION
     Dosage: NORVIR SOFT
     Route: 048
     Dates: start: 20080225
  3. EPZICOM [Suspect]
     Indication: HIV INFECTION
     Route: 048
     Dates: start: 20080225
  4. OLMETEC [Concomitant]
     Route: 048
     Dates: start: 20071217
  5. HERBESSER R [Concomitant]
     Route: 048
     Dates: start: 20071217
  6. WARFARIN POTASSIUM [Concomitant]
     Route: 048
     Dates: start: 20071217
  7. PARAMIDIN [Concomitant]
     Route: 048
     Dates: start: 20071217

REACTIONS (1)
  - CEREBRAL INFARCTION [None]
